FAERS Safety Report 9143931 (Version 1)
Quarter: 2013Q1

REPORT INFORMATION
  Report Type: Spontaneous
  Country: US (occurrence: US)
  Receive Date: 20130306
  Receipt Date: 20130306
  Transmission Date: 20140127
  Serious: Yes (Other)
  Sender: FDA-Public Use
  Company Number: US-ROCHE-1065043

PATIENT
  Age: 33 None
  Sex: Male
  Weight: 99.88 kg

DRUGS (1)
  1. ACCUTANE [Suspect]
     Indication: ACNE
     Route: 065
     Dates: start: 198401, end: 198406

REACTIONS (7)
  - Inflammatory bowel disease [Unknown]
  - Colitis ulcerative [Unknown]
  - Diverticulitis [Unknown]
  - Anxiety [Not Recovered/Not Resolved]
  - Large intestine polyp [Unknown]
  - Enterocutaneous fistula [Unknown]
  - Irritable bowel syndrome [Unknown]
